FAERS Safety Report 9869535 (Version 1)
Quarter: 2014Q1

REPORT INFORMATION
  Report Type: Spontaneous
  Country: US (occurrence: None)
  Receive Date: 20140131
  Receipt Date: 20140131
  Transmission Date: 20141002
  Serious: Yes (Other)
  Sender: FDA-Public Use
  Company Number: SYM-2014-15729

PATIENT
  Age: 62 Year
  Sex: Female

DRUGS (4)
  1. FLOUROURACIL [Suspect]
     Indication: COLORECTAL CANCER METASTATIC
  2. OXALIPLATIN [Suspect]
     Indication: COLORECTAL CANCER METASTATIC
  3. LEUCOVORIN [Suspect]
     Indication: COLORECTAL CANCER METASTATIC
  4. PANITUMAB [Suspect]
     Indication: COLORECTAL CANCER METASTATIC

REACTIONS (3)
  - Neurotoxicity [None]
  - Rash [None]
  - Paronychia [None]
